FAERS Safety Report 5152980-7 (Version None)
Quarter: 2006Q4

REPORT INFORMATION
  Report Type: 
  Country: None (occurrence: None)
  Receive Date: 20061110
  Receipt Date: 20061110
  Transmission Date: 20070319
  Serious: Yes (Hospitalization)
  Sender: FDA-Public Use
  Company Number: None

PATIENT
  Age: 52 Year
  Sex: Male
  Weight: 88.5 kg

DRUGS (1)
  1. PERCOCET [Suspect]
     Indication: DRUG USE FOR UNKNOWN INDICATION
     Dosage: #210     OVER FOUR DAYS    PO
     Route: 048

REACTIONS (10)
  - AGITATION [None]
  - ALCOHOLISM [None]
  - DRUG ABUSER [None]
  - HEPATIC ENZYME INCREASED [None]
  - MAJOR DEPRESSION [None]
  - OVERDOSE [None]
  - POLYSUBSTANCE DEPENDENCE [None]
  - STRESS [None]
  - SUICIDAL IDEATION [None]
  - WHITE BLOOD CELL COUNT INCREASED [None]
